FAERS Safety Report 19463226 (Version 2)
Quarter: 2021Q3

REPORT INFORMATION
  Report Type: Report from Study
  Country: CA (occurrence: CA)
  Receive Date: 20210625
  Receipt Date: 20210727
  Transmission Date: 20211014
  Serious: Yes (Other)
  Sender: FDA-Public Use
  Company Number: CA-OTSUKA-2021_021427

PATIENT
  Sex: Female

DRUGS (1)
  1. CEDAZURIDINE AND DECITABINE [Suspect]
     Active Substance: CEDAZURIDINE\DECITABINE
     Indication: MYELODYSPLASTIC SYNDROME
     Dosage: (35 MG DECITABINE AND 100 MG CEDAZURIDINE), 3 DAYS A WEEK
     Route: 065
     Dates: start: 20210616

REACTIONS (9)
  - Breast pain [Unknown]
  - Limb injury [Unknown]
  - Fatigue [Unknown]
  - Transfusion [Unknown]
  - Fall [Unknown]
  - Dyspnoea [Unknown]
  - Product use issue [Unknown]
  - Joint injury [Unknown]
  - Musculoskeletal chest pain [Unknown]
